FAERS Safety Report 6366429-X (Version None)
Quarter: 2009Q3

REPORT INFORMATION
  Report Type: 
  Country: None (occurrence: None)
  Receive Date: 20090921
  Receipt Date: 20090911
  Transmission Date: 20100115
  Serious: Yes (Hospitalization)
  Sender: FDA-Public Use
  Company Number: DE-ROCHE-649104

PATIENT
  Sex: Female
  Weight: 49 kg

DRUGS (2)
  1. CAPECITABINE [Suspect]
     Indication: BREAST CANCER
     Dosage: DOSE GIVEN ACCORDING TO PROTOCOL, LAST DOSE PRIOR TO SAE: 05 AUGUST 2009.  ADMINISTERED ON DAYS 1-14
     Route: 048
     Dates: start: 20090408
  2. BEVACIZUMAB [Suspect]
     Indication: BREAST CANCER
     Dosage: DOSE GIVEN ACCORDING TO PROTOCOL, LAST DOSE PRIOR TO SAE: 23 JULY 2009
     Route: 042
     Dates: start: 20090408

REACTIONS (1)
  - PLEURISY [None]
